FAERS Safety Report 7237918-0 (Version None)
Quarter: 2011Q1

REPORT INFORMATION
  Report Type: 
  Country: None (occurrence: None)
  Receive Date: 20110121
  Receipt Date: 20110106
  Transmission Date: 20110831
  Serious: Yes (Death)
  Sender: FDA-Public Use
  Company Number: US-PFIZER INC-2011000400

PATIENT
  Age: 27 Year
  Sex: Female

DRUGS (7)
  1. TOPIRAMATE [Suspect]
     Route: 048
  2. SALICYLATES [Suspect]
     Route: 048
  3. OSELTAMIVIR [Suspect]
     Route: 048
  4. ACETAMINOPHEN [Suspect]
     Dosage: UNK
     Route: 048
  5. IBUPROFEN [Suspect]
     Route: 048
  6. OXYCODONE HCL AND ACETAMINOPHEN [Suspect]
  7. OXYCODONE [Suspect]
     Route: 048

REACTIONS (1)
  - TOXICITY TO VARIOUS AGENTS [None]
